FAERS Safety Report 19445528 (Version 1)
Quarter: 2021Q2

REPORT INFORMATION
  Report Type: Spontaneous
  Country: NL (occurrence: NL)
  Receive Date: 20210622
  Receipt Date: 20210622
  Transmission Date: 20210717
  Serious: Yes (Hospitalization, Other)
  Sender: FDA-Public Use
  Company Number: NL-AUROBINDO-AUR-APL-2013-08499

PATIENT
  Age: 53 Year
  Sex: Male

DRUGS (1)
  1. AMOXICILLINE/CLAVULAANZUUR AUROBINDO 500/125MG FILMOMHULDE TABLETTEN [Suspect]
     Active Substance: AMOXICILLIN\CLAVULANATE POTASSIUM
     Indication: ERYSIPELAS
     Dosage: ONCE A DAY UNK UNK,UNK,,500/125 MG; 3X/DAY
     Route: 065

REACTIONS (5)
  - Agitation [Recovered/Resolved]
  - Confusional state [Recovered/Resolved]
  - Sleep disorder [Recovered/Resolved]
  - Mania [Recovered/Resolved]
  - Psychosexual disorder [Recovered/Resolved]
